FAERS Safety Report 9528588 (Version 1)
Quarter: 2013Q3

REPORT INFORMATION
  Report Type: Spontaneous
  Country: DE (occurrence: DE)
  Receive Date: 20130917
  Receipt Date: 20130917
  Transmission Date: 20140515
  Serious: Yes (Hospitalization, Congenital Anomaly, Other)
  Sender: FDA-Public Use
  Company Number: DE-TEVA-431038GER

PATIENT
  Age: 1 Day
  Sex: Female

DRUGS (5)
  1. LAMOTRIGIN [Suspect]
     Route: 064
  2. QUETIAPINE [Suspect]
     Route: 064
  3. LITHIUM [Suspect]
     Route: 064
  4. METOPROLOL [Concomitant]
     Route: 064
  5. AUGMENTAN [Concomitant]
     Route: 064

REACTIONS (8)
  - Coarctation of the aorta [Unknown]
  - Congenital aortic valve stenosis [Recovered/Resolved with Sequelae]
  - Patent ductus arteriosus [Recovered/Resolved]
  - Hypotonia [Recovered/Resolved]
  - Hypotension [Recovered/Resolved]
  - Neonatal respiratory distress syndrome [Recovered/Resolved]
  - Bradycardia neonatal [Recovered/Resolved]
  - Atrial septal defect [Unknown]
